FAERS Safety Report 10434374 (Version 2)
Quarter: 2014Q4

REPORT INFORMATION
  Report Type: Report from Study
  Country: CA (occurrence: CA)
  Receive Date: 20140905
  Receipt Date: 20141002
  Transmission Date: 20150528
  Serious: Yes (Death)
  Sender: FDA-Public Use
  Company Number: CA-ABBVIE-14P-028-1280021-00

PATIENT
  Sex: Male
  Weight: 95.4 kg

DRUGS (1)
  1. LUPRON DEPOT [Suspect]
     Active Substance: LEUPROLIDE ACETATE
     Indication: PROSTATE CANCER
     Dosage: TOTAL OF 7 DOSES
     Route: 030
     Dates: start: 20130122, end: 20140716

REACTIONS (8)
  - Pneumonia [Fatal]
  - Septic shock [Fatal]
  - Chronic obstructive pulmonary disease [Fatal]
  - Palpitations [Fatal]
  - Pain [Fatal]
  - Cold sweat [Fatal]
  - Dyspnoea [Fatal]
  - Prostate cancer metastatic [Fatal]

NARRATIVE: CASE EVENT DATE: 20140826
